FAERS Safety Report 9236629 (Version 1)
Quarter: 2013Q2

REPORT INFORMATION
  Report Type: Other
  Country: GB (occurrence: GB)
  Receive Date: 20130417
  Receipt Date: 20130417
  Transmission Date: 20140414
  Serious: Yes (Other)
  Sender: FDA-Public Use
  Company Number: GB-WATSON-2013-06158

PATIENT
  Sex: Male

DRUGS (2)
  1. CLARITHROMYCIN (UNKNOWN) [Suspect]
     Indication: LOWER RESPIRATORY TRACT INFECTION
     Dosage: 500 MG, BID. FORM: UNKNOWN
     Route: 065
     Dates: start: 20130118, end: 20130121
  2. EPILIM [Suspect]
     Indication: EPILEPSY
     Dosage: 300 MG, QID
     Route: 048

REACTIONS (2)
  - Convulsion [Recovered/Resolved]
  - Drug interaction [Unknown]
